FAERS Safety Report 24058544 (Version 1)
Quarter: 2024Q3

REPORT INFORMATION
  Report Type: Spontaneous
  Country: FI (occurrence: FI)
  Receive Date: 20240708
  Receipt Date: 20240708
  Transmission Date: 20241016
  Serious: Yes (Hospitalization)
  Sender: TEVA
  Company Number: None

PATIENT
  Age: 61 Year
  Sex: Female

DRUGS (1)
  1. AJOVY [Suspect]
     Active Substance: FREMANEZUMAB-VFRM
     Indication: Migraine prophylaxis
     Route: 065

REACTIONS (3)
  - Scar [Recovered/Resolved with Sequelae]
  - Peripheral vascular disorder [Recovered/Resolved with Sequelae]
  - Impaired healing [Recovered/Resolved with Sequelae]

NARRATIVE: CASE EVENT DATE: 20231219
